FAERS Safety Report 4460439-5 (Version None)
Quarter: 2004Q3

REPORT INFORMATION
  Report Type: 
  Country: None (occurrence: None)
  Receive Date: 20040928
  Receipt Date: 20040709
  Transmission Date: 20050211
  Serious: No
  Sender: FDA-Public Use
  Company Number: US-GLAXOSMITHKLINE-A0518013A

PATIENT
  Age: 76 Year
  Sex: Female

DRUGS (2)
  1. SEREVENT [Suspect]
     Indication: DRUG USE FOR UNKNOWN INDICATION
     Route: 055
  2. ACETYLCYSTEINE [Concomitant]
     Indication: RESPIRATORY DISORDER
     Dosage: 200MG UNKNOWN
     Route: 065
     Dates: start: 19900101

REACTIONS (3)
  - ERYTHEMA [None]
  - RASH [None]
  - RASH MACULAR [None]
